FAERS Safety Report 12940007 (Version 1)
Quarter: 2016Q4

REPORT INFORMATION
  Report Type: Spontaneous
  Country: US (occurrence: US)
  Receive Date: 20161115
  Receipt Date: 20161115
  Transmission Date: 20170207
  Serious: Yes (Hospitalization)
  Sender: FDA-Public Use
  Company Number: None

PATIENT
  Age: 15 Year
  Sex: Female

DRUGS (10)
  1. AMIKACIN 500MG HERITAGE PHARMACEUTICALS [Suspect]
     Active Substance: AMIKACIN SULFATE
     Indication: CYSTIC FIBROSIS
     Dosage: 500MG; BID; NEB
     Dates: start: 20160722
  2. SOD CHL [Concomitant]
  3. PREDNISONE. [Concomitant]
     Active Substance: PREDNISONE
  4. ZENPEP [Concomitant]
     Active Substance: PANCRELIPASE AMYLASE\PANCRELIPASE LIPASE\PANCRELIPASE PROTEASE
  5. OMEPRAZOLE. [Concomitant]
     Active Substance: OMEPRAZOLE
  6. DULERA [Concomitant]
     Active Substance: FORMOTEROL FUMARATE DIHYDRATE\MOMETASONE FUROATE
  7. VITAMIN D [Concomitant]
     Active Substance: CHOLECALCIFEROL
  8. NOVOLOG [Concomitant]
     Active Substance: INSULIN ASPART
  9. AZITHRO [Concomitant]
  10. URSODIOL. [Concomitant]
     Active Substance: URSODIOL

REACTIONS (1)
  - Lung infection [None]

NARRATIVE: CASE EVENT DATE: 20161108
